FAERS Safety Report 18249113 (Version 2)
Quarter: 2020Q3

REPORT INFORMATION
  Report Type: Spontaneous
  Country: DK (occurrence: DK)
  Receive Date: 20200909
  Receipt Date: 20200925
  Transmission Date: 20201103
  Serious: Yes (Death, Hospitalization)
  Sender: FDA-Public Use
  Company Number: DK-ROCHE-2670609

PATIENT
  Age: 68 Year
  Sex: Female
  Weight: 84.1 kg

DRUGS (16)
  1. RIVAROXABAN [Concomitant]
     Active Substance: RIVAROXABAN
     Dosage: 1X1
     Dates: start: 20200803
  2. CETIRIZIN [Concomitant]
     Active Substance: CETIRIZINE HYDROCHLORIDE
     Dosage: WHEN NEEDED
     Dates: start: 20200803
  3. KALIUMCHLORID;MACROGOL 3350;NATRIUMCHLORID;NATRIUMHYDROGENCARBONAT [Concomitant]
     Indication: CONSTIPATION
     Dosage: WHEN NEEDED
     Dates: start: 20200803
  4. MIRTAZAPIN [Concomitant]
     Active Substance: MIRTAZAPINE
     Dosage: 1X1
     Dates: start: 20180615
  5. IPRATROPIUM;SALBUTAMOL [Concomitant]
     Active Substance: ALBUTEROL\IPRATROPIUM
     Dosage: 2.5 MG + 0.5 MG
     Dates: start: 20200825
  6. TOLTERODIN [Concomitant]
     Active Substance: TOLTERODINE TARTRATE
     Dosage: 1X1
     Dates: start: 20200803
  7. HALOPERIDOL. [Concomitant]
     Active Substance: HALOPERIDOL
     Dosage: 5 MG/ML, 0.2 ML WHEN NEEDED
     Route: 058
     Dates: start: 20200825
  8. METOCLOPRAMID [Concomitant]
     Active Substance: METOCLOPRAMIDE
     Dosage: WHEN NEEDED
     Dates: start: 20200803
  9. PIPERACILLIN AND TAZOBACTAM [Concomitant]
     Active Substance: PIPERACILLIN SODIUM\TAZOBACTAM SODIUM
     Dosage: 4 G + 500 MG, 100 ML X 2
     Route: 042
     Dates: start: 20200825
  10. UNIKALK FORTE [Concomitant]
     Indication: CALCIUM DEFICIENCY
     Dosage: 1X2
     Dates: start: 20200803
  11. MORPHINE [Concomitant]
     Active Substance: MORPHINE
     Dosage: 20 MG/ML, 0.1?0.5 ML WHEN NEEDED
     Dates: start: 20200825
  12. PREDNISOLON [Concomitant]
     Active Substance: PREDNISOLONE
     Dosage: MAX 50 MG WHEN NEEDED
     Dates: start: 20200803
  13. TRAMADOL. [Concomitant]
     Active Substance: TRAMADOL
     Dosage: WHEN NEEDED
     Dates: start: 20200825
  14. MIDAZOLAM. [Concomitant]
     Active Substance: MIDAZOLAM
     Dosage: 1 MG/ML WHEN NEEDED
     Route: 058
     Dates: start: 20200825
  15. TECENTRIQ [Suspect]
     Active Substance: ATEZOLIZUMAB
     Indication: BREAST CANCER
     Route: 041
     Dates: start: 20200818
  16. DERMOVAT [Concomitant]
     Active Substance: CLOBETASOL
     Dosage: 0.5 MG/G, 1X1
     Dates: start: 20180615

REACTIONS (7)
  - Acute kidney injury [Fatal]
  - Dyspnoea [Unknown]
  - Infection [Unknown]
  - General physical health deterioration [Unknown]
  - Metabolic acidosis [Unknown]
  - Hepatic failure [Unknown]
  - Hepatitis [Fatal]

NARRATIVE: CASE EVENT DATE: 20200825
